FAERS Safety Report 6273687-9 (Version None)
Quarter: 2009Q3

REPORT INFORMATION
  Report Type: 
  Country: None (occurrence: None)
  Receive Date: 20090713
  Receipt Date: 20080703
  Transmission Date: 20100115
  Serious: Yes (Other)
  Sender: FDA-Public Use
  Company Number: 573947

PATIENT
  Age: 74 Year
  Sex: Female
  Weight: 46.3 kg

DRUGS (4)
  1. BONIVA [Suspect]
     Indication: OSTEOPOROSIS
     Dosage: 150 MG 1 PER MONTH ORAL
     Route: 048
     Dates: start: 20080701, end: 20080701
  2. ZOCOR [Concomitant]
  3. COZAAR [Concomitant]
  4. ESTROGEN (ESTROGEN NOS) [Concomitant]

REACTIONS (3)
  - ARTHROPATHY [None]
  - MYALGIA [None]
  - PYREXIA [None]
